FAERS Safety Report 4480527-7 (Version None)
Quarter: 2004Q4

REPORT INFORMATION
  Report Type: 
  Country: None (occurrence: None)
  Receive Date: 20041019
  Receipt Date: 20041006
  Transmission Date: 20050328
  Serious: Yes (Other)
  Sender: FDA-Public Use
  Company Number: 2004076078

PATIENT
  Sex: 0

DRUGS (3)
  1. SERTRALINE HYDROCHLORIDE [Suspect]
     Indication: ILL-DEFINED DISORDER
  2. LEVODOPA    (LEVODOPA) [Suspect]
     Indication: ILL-DEFINED DISORDER
  3. CARBIDOPA       (CARBIDOPA) [Suspect]
     Indication: ILL-DEFINED DISORDER

REACTIONS (1)
  - CEREBROVASCULAR ACCIDENT [None]
